FAERS Safety Report 24675530 (Version 1)
Quarter: 2024Q4

REPORT INFORMATION
  Report Type: Other
  Country: CN (occurrence: CN)
  Receive Date: 20241128
  Receipt Date: 20241128
  Transmission Date: 20250114
  Serious: Yes (Life-Threatening, Hospitalization, Other)
  Sender: PL DEVELOPMENTS
  Company Number: CN-P+L Developments of Newyork Corporation-2166146

PATIENT
  Age: 74 Year
  Sex: Female

DRUGS (1)
  1. OMEPRAZOLE MAGNESIUM [Suspect]
     Active Substance: OMEPRAZOLE MAGNESIUM
     Indication: Abdominal discomfort

REACTIONS (4)
  - Hypomagnesaemia [Recovered/Resolved]
  - Cerebellar syndrome [Recovered/Resolved]
  - Hypoparathyroidism [Recovered/Resolved]
  - Hypokalaemia [Recovered/Resolved]
